FAERS Safety Report 11723165 (Version 2)
Quarter: 2015Q4

REPORT INFORMATION
  Report Type: Spontaneous
  Country: US (occurrence: None)
  Receive Date: 20151111
  Receipt Date: 20151116
  Transmission Date: 20160304
  Serious: No
  Sender: FDA-Public Use
  Company Number: US-MDT-ADR-2015-02118

PATIENT
  Age: 52 Year
  Sex: Male

DRUGS (1)
  1. LIORESAL [Suspect]
     Active Substance: BACLOFEN
     Indication: MUSCLE SPASTICITY
     Dosage: 1450 MCG/DAY

REACTIONS (4)
  - Discomfort [None]
  - Therapeutic response increased [None]
  - Musculoskeletal stiffness [None]
  - Device infusion issue [None]
